FAERS Safety Report 7210754-7 (Version None)
Quarter: 2011Q1

REPORT INFORMATION
  Report Type: 
  Country: None (occurrence: None)
  Receive Date: 20110105
  Receipt Date: 20101229
  Transmission Date: 20110831
  Serious: No
  Sender: FDA-Public Use
  Company Number: US-ROXANE LABORATORIES, INC.-2010-RO-01459RO

PATIENT

DRUGS (2)
  1. BUPRENORPHINE HYDROCHLORIDE [Suspect]
  2. BUPRENORPHINE HYDROCHLORIDE [Suspect]

REACTIONS (4)
  - OROPHARYNGEAL BLISTERING [None]
  - WITHDRAWAL SYNDROME [None]
  - HEADACHE [None]
  - DRUG INEFFECTIVE [None]
